FAERS Safety Report 8424634-2 (Version None)
Quarter: 2012Q2

REPORT INFORMATION
  Report Type: 
  Country: None (occurrence: None)
  Receive Date: 20120611
  Receipt Date: 20120605
  Transmission Date: 20120825
  Serious: Yes (Hospitalization)
  Sender: FDA-Public Use
  Company Number: US-BIOGENIDEC-2011BI036771

PATIENT
  Age: 55 Year
  Sex: Female
  Weight: 91 kg

DRUGS (3)
  1. ADDERALL 5 [Concomitant]
     Indication: FATIGUE
     Route: 048
     Dates: start: 20080701
  2. VITAMIN D [Concomitant]
  3. TYSABRI [Suspect]
     Indication: MULTIPLE SCLEROSIS
     Route: 042
     Dates: start: 20071204, end: 20110914

REACTIONS (1)
  - OVARIAN CANCER [None]
